FAERS Safety Report 17807848 (Version 3)
Quarter: 2020Q4

REPORT INFORMATION
  Report Type: Spontaneous
  Country: HR (occurrence: HR)
  Receive Date: 20200520
  Receipt Date: 20201128
  Transmission Date: 20210113
  Serious: Yes (Death)
  Sender: FDA-Public Use
  Company Number: HR-JNJFOC-20200524335

PATIENT
  Sex: Male

DRUGS (3)
  1. NITRAZEPAM [Concomitant]
     Active Substance: NITRAZEPAM
     Indication: INSOMNIA
     Route: 048
  2. ALPRAZOLAM. [Concomitant]
     Active Substance: ALPRAZOLAM
     Route: 048
  3. STELARA [Suspect]
     Active Substance: USTEKINUMAB
     Indication: PSORIASIS
     Route: 058
     Dates: start: 201504

REACTIONS (3)
  - Blood pressure increased [Unknown]
  - Lipids increased [Unknown]
  - Cardiac arrest [Fatal]

NARRATIVE: CASE EVENT DATE: 202005
